FAERS Safety Report 16247463 (Version 1)
Quarter: 2019Q2

REPORT INFORMATION
  Report Type: Other
  Country: JP (occurrence: JP)
  Receive Date: 20190428
  Receipt Date: 20190428
  Transmission Date: 20190711
  Serious: Yes (Hospitalization, Other)
  Sender: FDA-Public Use
  Company Number: JP-DEXPHARM-20190281

PATIENT
  Age: 70 Year
  Sex: Female

DRUGS (2)
  1. LISINOPRIL. [Suspect]
     Active Substance: LISINOPRIL
     Indication: HYPERTENSION
  2. LANSOPRAZOLE. [Suspect]
     Active Substance: LANSOPRAZOLE

REACTIONS (1)
  - Inappropriate antidiuretic hormone secretion [Recovered/Resolved]
